FAERS Safety Report 16483629 (Version 1)
Quarter: 2019Q2

REPORT INFORMATION
  Report Type: Spontaneous
  Country: FR (occurrence: FR)
  Receive Date: 20190627
  Receipt Date: 20190627
  Transmission Date: 20190711
  Serious: Yes (Hospitalization)
  Sender: FDA-Public Use
  Company Number: FR-AMNEAL PHARMACEUTICALS-2019AMN00713

PATIENT
  Age: 64 Year
  Sex: Male
  Weight: 81 kg

DRUGS (4)
  1. ACYCLOVIR. [Suspect]
     Active Substance: ACYCLOVIR
     Dosage: UNK (15 MG/KG/8 H )
  2. AMOXICILLIN. [Concomitant]
     Active Substance: AMOXICILLIN
     Indication: VARICELLA ZOSTER VIRUS INFECTION
     Dosage: 12 G/D
     Route: 065
  3. ACYCLOVIR. [Suspect]
     Active Substance: ACYCLOVIR
     Indication: VARICELLA ZOSTER VIRUS INFECTION
     Dosage: 500 MG/8 H
     Route: 065
  4. ACYCLOVIR. [Suspect]
     Active Substance: ACYCLOVIR
     Dosage: 3.33 MG/ML
     Route: 065

REACTIONS (3)
  - Dizziness [Recovered/Resolved]
  - Acute kidney injury [Recovered/Resolved]
  - Abdominal discomfort [Recovered/Resolved]
